FAERS Safety Report 18991667 (Version 1)
Quarter: 2021Q1

REPORT INFORMATION
  Report Type: Spontaneous
  Country: IT (occurrence: IT)
  Receive Date: 20210310
  Receipt Date: 20210310
  Transmission Date: 20210420
  Serious: Yes (Other)
  Sender: FDA-Public Use
  Company Number: IT-TEVA-2021-IT-1887486

PATIENT
  Age: 77 Year
  Sex: Female

DRUGS (1)
  1. OLANZAPINA TEVA [Suspect]
     Active Substance: OLANZAPINE
     Dosage: 10 MG
     Route: 048
     Dates: start: 20140101, end: 20200915

REACTIONS (4)
  - Pruritus [Unknown]
  - Drug ineffective [Unknown]
  - Hallucination [Unknown]
  - Urticaria [Unknown]

NARRATIVE: CASE EVENT DATE: 20200901
